FAERS Safety Report 9109758 (Version 2)
Quarter: 2013Q1

REPORT INFORMATION
  Report Type: Spontaneous
  Country: FR (occurrence: FR)
  Receive Date: 20130222
  Receipt Date: 20130308
  Transmission Date: 20140127
  Serious: Yes (Other)
  Sender: FDA-Public Use
  Company Number: FR-AMGEN-FRASP2012082472

PATIENT
  Age: 69 Year
  Sex: Female

DRUGS (2)
  1. PROLIA [Suspect]
     Indication: PRODUCT USED FOR UNKNOWN INDICATION
     Dosage: UNK UNK, Q6MO
     Route: 058
     Dates: start: 20120723
  2. CALCIDOSE VITAMINE D [Concomitant]

REACTIONS (17)
  - Psoriatic arthropathy [Unknown]
  - Pain [Unknown]
  - Cutaneous lupus erythematosus [Recovered/Resolved]
  - Rash macular [Unknown]
  - Skin injury [Unknown]
  - Skin fissures [Unknown]
  - Skin plaque [Unknown]
  - Vasculitis [Unknown]
  - Chest pain [Unknown]
  - Spondylolisthesis [Unknown]
  - Osteoarthritis [Unknown]
  - Chondrocalcinosis [Unknown]
  - Local swelling [Unknown]
  - Spinal osteoarthritis [Unknown]
  - Back pain [Unknown]
  - Pain in extremity [Unknown]
  - Erythema [Unknown]
